FAERS Safety Report 24667192 (Version 4)
Quarter: 2025Q2

REPORT INFORMATION
  Report Type: Report from Study
  Country: US (occurrence: US)
  Receive Date: 20241126
  Receipt Date: 20250404
  Transmission Date: 20250717
  Serious: Yes (Hospitalization)
  Sender: EISAI
  Company Number: US-Eisai-EC-2024-179641

PATIENT
  Age: 37 Year
  Sex: Male
  Weight: 90.7 kg

DRUGS (21)
  1. LENVIMA [Suspect]
     Active Substance: LENVATINIB
     Indication: Renal cancer
     Dates: start: 20240329
  2. LENVIMA [Suspect]
     Active Substance: LENVATINIB
     Dosage: DOING TWO (20MG) ONE DAY AND THEN ONE (10MG) A DAY
     Dates: start: 202406, end: 20241010
  3. LENVIMA [Suspect]
     Active Substance: LENVATINIB
     Dates: start: 2024, end: 2024
  4. LENVIMA [Suspect]
     Active Substance: LENVATINIB
     Dates: start: 2024, end: 2024
  5. LENVIMA [Suspect]
     Active Substance: LENVATINIB
     Dates: start: 20241209
  6. LENVIMA [Suspect]
     Active Substance: LENVATINIB
  7. KEYTRUDA [Suspect]
     Active Substance: PEMBROLIZUMAB
     Indication: Renal cell carcinoma
  8. OXYBUTYNIN CHLORIDE [Concomitant]
     Active Substance: OXYBUTYNIN CHLORIDE
  9. ROSUVASTATIN CALCIUM [Concomitant]
     Active Substance: ROSUVASTATIN CALCIUM
  10. AMLODIPINE [Concomitant]
     Active Substance: AMLODIPINE BESYLATE
  11. PREDNISONE [Concomitant]
     Active Substance: PREDNISONE
  12. XANAX [Concomitant]
     Active Substance: ALPRAZOLAM
  13. ATIVAN [Concomitant]
     Active Substance: LORAZEPAM
  14. ALLOPURINOL [Concomitant]
     Active Substance: ALLOPURINOL
  15. CREON [Concomitant]
     Active Substance: PANCRELIPASE AMYLASE\PANCRELIPASE LIPASE\PANCRELIPASE PROTEASE
  16. ATROPINE\DIPHENOXYLATE [Concomitant]
     Active Substance: ATROPINE\DIPHENOXYLATE
  17. IMODIUM [Concomitant]
     Active Substance: LOPERAMIDE HYDROCHLORIDE
  18. TAMSULOSIN [Concomitant]
     Active Substance: TAMSULOSIN
  19. TELMISARTAN [Concomitant]
     Active Substance: TELMISARTAN
  20. ZOLPIDEM TARTRATE [Concomitant]
     Active Substance: ZOLPIDEM TARTRATE
  21. PSEUDOEPHEDRINE HYDROCHLORIDE [Concomitant]
     Active Substance: PSEUDOEPHEDRINE HYDROCHLORIDE

REACTIONS (2)
  - Epistaxis [Not Recovered/Not Resolved]
  - Clostridium difficile infection [Recovered/Resolved]

NARRATIVE: CASE EVENT DATE: 20240101
